FAERS Safety Report 7070501-9 (Version None)
Quarter: 2010Q4

REPORT INFORMATION
  Report Type: 
  Country: None (occurrence: None)
  Receive Date: 20101029
  Receipt Date: 20101019
  Transmission Date: 20110411
  Serious: Yes (Other)
  Sender: FDA-Public Use
  Company Number: US-JNJFOC-20101005921

PATIENT
  Sex: Male
  Weight: 102.06 kg

DRUGS (6)
  1. LEVAQUIN [Suspect]
     Indication: URINARY TRACT INFECTION
     Route: 048
  2. RISPERIDONE [Concomitant]
     Indication: SCHIZOPHRENIA
     Route: 048
  3. RISPERIDONE [Concomitant]
     Route: 048
  4. LISINOPRIL [Concomitant]
     Indication: HYPERTENSION
     Route: 048
  5. COGENTIN [Concomitant]
     Indication: PROPHYLAXIS
     Dosage: DOSE- 1- 2 MG AND 1- 2 TABLETS ONCE DAILY AT BEDTIME AS NEEDED
     Route: 048
  6. COGENTIN [Concomitant]
     Dosage: IN THE AM
     Route: 048

REACTIONS (3)
  - DEPRESSION [None]
  - HYPERTONIC BLADDER [None]
  - VOMITING [None]
